FAERS Safety Report 22154226 (Version 1)
Quarter: 2023Q1

REPORT INFORMATION
  Report Type: Spontaneous
  Country: CA (occurrence: CA)
  Receive Date: 20230330
  Receipt Date: 20230330
  Transmission Date: 20230418
  Serious: Yes (Death, Other)
  Sender: FDA-Public Use
  Company Number: CA-AMGEN-CANSP2023052142

PATIENT

DRUGS (1)
  1. FILGRASTIM [Suspect]
     Active Substance: FILGRASTIM
     Indication: Prophylaxis
     Dosage: UNK
     Route: 065

REACTIONS (6)
  - Death [Fatal]
  - Adverse event [Unknown]
  - Diffuse large B-cell lymphoma [Unknown]
  - Arrhythmia [Unknown]
  - Culture positive [Unknown]
  - Diarrhoea [Unknown]
